FAERS Safety Report 25951656 (Version 1)
Quarter: 2025Q4

REPORT INFORMATION
  Report Type: Spontaneous
  Country: GB (occurrence: GB)
  Receive Date: 20251023
  Receipt Date: 20251023
  Transmission Date: 20260117
  Serious: Yes (Other)
  Sender: DEXCEL LTD.
  Company Number: None

PATIENT

DRUGS (1)
  1. DICLOFENAC SODIUM [Suspect]
     Active Substance: DICLOFENAC SODIUM

REACTIONS (16)
  - Haematochezia [Unknown]
  - Abdominal pain upper [Unknown]
  - Faeces discoloured [Unknown]
  - Chest pain [Unknown]
  - Eye irritation [Unknown]
  - Illness [Unknown]
  - Chills [Unknown]
  - Erythema [Unknown]
  - Blister [Unknown]
  - Headache [Unknown]
  - Tinnitus [Unknown]
  - Diarrhoea [Unknown]
  - Fatigue [Unknown]
  - Feeling hot [Unknown]
  - Feeling of body temperature change [Unknown]
  - Muscle spasms [Unknown]
